FAERS Safety Report 4610752-3 (Version None)
Quarter: 2005Q1

REPORT INFORMATION
  Report Type: 
  Country: None (occurrence: None)
  Receive Date: 20050301
  Receipt Date: 20041213
  Transmission Date: 20050727
  Serious: No
  Sender: FDA-Public Use
  Company Number: WAES 0412USA01616

PATIENT
  Age: 64 Year
  Sex: Female

DRUGS (1)
  1. ZETIA [Suspect]
     Indication: BLOOD CHOLESTEROL INCREASED
     Dosage: 10MG/DAILY/PO
     Route: 048
     Dates: start: 20040513, end: 20040101

REACTIONS (1)
  - DEPRESSION [None]
